FAERS Safety Report 15441223 (Version 1)
Quarter: 2018Q3

REPORT INFORMATION
  Report Type: Spontaneous
  Country: US (occurrence: US)
  Receive Date: 20180928
  Receipt Date: 20180928
  Transmission Date: 20181010
  Serious: No
  Sender: FDA-Public Use
  Company Number: US-ASTRAZENECA-2018SF11511

PATIENT
  Age: 1062 Month
  Sex: Male
  Weight: 72.6 kg

DRUGS (1)
  1. PULMICORT FLEXHALER [Suspect]
     Active Substance: BUDESONIDE
     Indication: ASTHMA
     Route: 055
     Dates: start: 201808, end: 201808

REACTIONS (5)
  - Migraine [Unknown]
  - General physical health deterioration [Unknown]
  - Intentional product misuse [Unknown]
  - Neck pain [Unknown]
  - Device defective [Unknown]

NARRATIVE: CASE EVENT DATE: 201808
